FAERS Safety Report 4626248-9 (Version None)
Quarter: 2005Q2

REPORT INFORMATION
  Report Type: 
  Country: None (occurrence: None)
  Receive Date: 20050404
  Receipt Date: 20041025
  Transmission Date: 20051028
  Serious: Yes (Hospitalization, Disabling)
  Sender: FDA-Public Use
  Company Number: US-ROCHE-384475

PATIENT
  Age: 23 Year
  Sex: Female
  Weight: 29.5 kg

DRUGS (2)
  1. ACCUTANE [Suspect]
     Route: 065
     Dates: start: 19950929, end: 19960318
  2. BIRTH CONTROL PILLS NOS [Concomitant]
     Route: 048

REACTIONS (41)
  - ABDOMINAL DISTENSION [None]
  - ACNE [None]
  - ALOPECIA [None]
  - ANAEMIA [None]
  - BACK PAIN [None]
  - BLOOD CULTURE POSITIVE [None]
  - BLOOD IRON DECREASED [None]
  - BLOOD POTASSIUM INCREASED [None]
  - BLOOD THYROID STIMULATING HORMONE DECREASED [None]
  - CHILLS [None]
  - COLITIS [None]
  - CONDITION AGGRAVATED [None]
  - CONSTIPATION [None]
  - COUGH [None]
  - CROHN'S DISEASE [None]
  - DIARRHOEA [None]
  - DYSPEPSIA [None]
  - ENTEROCOCCAL INFECTION [None]
  - FATIGUE [None]
  - GASTROINTESTINAL DISORDER [None]
  - HEADACHE [None]
  - INFLAMMATORY BOWEL DISEASE [None]
  - INTESTINAL HAEMORRHAGE [None]
  - IRRITABLE BOWEL SYNDROME [None]
  - MULTI-ORGAN DISORDER [None]
  - MUSCLE SPASMS [None]
  - MYALGIA [None]
  - NAUSEA [None]
  - PALLOR [None]
  - PRURITUS [None]
  - RECTAL HAEMORRHAGE [None]
  - RED BLOOD CELL SEDIMENTATION RATE INCREASED [None]
  - SKIN HYPERPIGMENTATION [None]
  - SKIN PAPILLOMA [None]
  - SUPRAPUBIC PAIN [None]
  - TELANGIECTASIA [None]
  - VIRAL INFECTION [None]
  - VIRAL UPPER RESPIRATORY TRACT INFECTION [None]
  - VOMITING [None]
  - WEIGHT DECREASED [None]
  - XEROSIS [None]
